FAERS Safety Report 7628726-7 (Version None)
Quarter: 2011Q3

REPORT INFORMATION
  Report Type: 
  Country: None (occurrence: None)
  Receive Date: 20110714
  Receipt Date: 20110628
  Transmission Date: 20111222
  Serious: Yes (Hospitalization)
  Sender: FDA-Public Use
  Company Number: DSA_47059_2011

PATIENT
  Age: 77 Year
  Sex: Female

DRUGS (5)
  1. GLYBURIDE AND METFORMIN HYDROCHLORIDE [Suspect]
     Indication: TYPE 2 DIABETES MELLITUS
     Dosage: 5, 400 MG, DAILY, ORAL
     Route: 048
     Dates: start: 20080416, end: 20100416
  2. OMEPRAZOLE [Concomitant]
  3. SINVACOR [Concomitant]
  4. NITROSORBIDE [Concomitant]
  5. ENALAPRIL MALEATE AND HYDROCHLOROTHIAZIDE [Suspect]
     Indication: HYPERTENSION
     Dosage: 20, 12.5 MG, DAILY, ORAL
     Route: 048
     Dates: start: 20070101, end: 20100416

REACTIONS (2)
  - HYPOKALAEMIA [None]
  - HYPOGLYCAEMIA [None]
